FAERS Safety Report 24214246 (Version 1)
Quarter: 2024Q3

REPORT INFORMATION
  Report Type: Spontaneous
  Country: US (occurrence: US)
  Receive Date: 20240815
  Receipt Date: 20240815
  Transmission Date: 20241016
  Serious: Yes (Hospitalization)
  Sender: MERCK
  Company Number: US-009507513-2408USA005048

PATIENT
  Age: 48 Year
  Sex: Female
  Weight: 80.7 kg

DRUGS (14)
  1. WINREVAIR [Suspect]
     Active Substance: SOTATERCEPT-CSRK
     Dosage: UNK
  2. REMODULIN [Suspect]
     Active Substance: TREPROSTINIL
     Indication: Pulmonary arterial hypertension
     Dosage: 0.078 MICROGRAM PER KILOGRAM
     Route: 058
     Dates: start: 20210203
  3. FUROSEMIDE [Concomitant]
     Active Substance: FUROSEMIDE
  4. PEPCID [Concomitant]
     Active Substance: FAMOTIDINE
  5. LIPITOR [Concomitant]
     Active Substance: ATORVASTATIN CALCIUM
  6. POTASSIUM CHLORIDE [Concomitant]
     Active Substance: POTASSIUM CHLORIDE
  7. ALBUTEROL SULFATE [Concomitant]
     Active Substance: ALBUTEROL SULFATE
  8. OPSUMIT [Concomitant]
     Active Substance: MACITENTAN
  9. LORATADINE [Concomitant]
     Active Substance: LORATADINE
  10. ASPIRIN [Concomitant]
     Active Substance: ASPIRIN
  11. OXYGEN [Concomitant]
     Active Substance: OXYGEN
  12. SPIRONOLACTONE [Concomitant]
     Active Substance: SPIRONOLACTONE
  13. REVATIO [Concomitant]
     Active Substance: SILDENAFIL CITRATE
  14. SYMBICORT [Concomitant]
     Active Substance: BUDESONIDE\FORMOTEROL FUMARATE DIHYDRATE

REACTIONS (1)
  - Tachycardia [Recovered/Resolved]

NARRATIVE: CASE EVENT DATE: 20240426
